FAERS Safety Report 15542008 (Version 3)
Quarter: 2018Q4

REPORT INFORMATION
  Report Type: Report from Study
  Country: US (occurrence: US)
  Receive Date: 20181023
  Receipt Date: 20181225
  Transmission Date: 20190205
  Serious: No
  Sender: FDA-Public Use
  Company Number: PHEH2018US044052

PATIENT
  Sex: Female

DRUGS (2)
  1. ENTRESTO [Suspect]
     Active Substance: SACUBITRIL\VALSARTAN
     Dosage: UNK, BID (2 (24MG OF SACUBITRIL/ 26 MG OF VALSARTAN) IN THE MORNING AND 2 IN THE EVENING)
     Route: 048
  2. ENTRESTO [Suspect]
     Active Substance: SACUBITRIL\VALSARTAN
     Indication: PRODUCT USED FOR UNKNOWN INDICATION
     Dosage: 1 DF, BID (24MG OF SACUBITRIL/ 26 MG OF VALSARTAN)
     Route: 048

REACTIONS (2)
  - Peripheral swelling [Unknown]
  - Sinusitis [Unknown]
